FAERS Safety Report 4551307-9 (Version None)
Quarter: 2005Q1

REPORT INFORMATION
  Report Type: 
  Country: None (occurrence: None)
  Receive Date: 20050110
  Receipt Date: 20041229
  Transmission Date: 20050727
  Serious: Yes (Hospitalization)
  Sender: FDA-Public Use
  Company Number: HQWYE174319FEB04

PATIENT
  Age: 90 Year
  Sex: Female

DRUGS (9)
  1. AMIODARONE HCL [Suspect]
     Dosage: 200 MG 3X PER 1 DAY, ORAL
     Route: 048
     Dates: start: 20030323, end: 20030101
  2. AMIODARONE HCL [Suspect]
     Dosage: 200 MG 1X PER 1 DAY, ORAL
     Route: 048
     Dates: start: 20030101, end: 20040120
  3. DIGOXIN [Suspect]
     Indication: ATRIAL FIBRILLATION
     Dosage: 125 UG 1X PER 1 DAY, ORAL
     Route: 048
     Dates: start: 20030120, end: 20030303
  4. DIGOXIN [Suspect]
     Dosage: 187.5 UG 1X PER 1 DAY, ORAL
     Route: 048
     Dates: start: 20030304, end: 20040120
  5. CHLORAMPHENICOL [Concomitant]
  6. NEOMYCIN [Concomitant]
  7. FUROSEMIDE [Concomitant]
  8. FYBOGEL (ISPAGHULA) [Concomitant]
  9. ASPIRIN [Concomitant]

REACTIONS (11)
  - BLOOD ALBUMIN DECREASED [None]
  - BLOOD BILIRUBIN INCREASED [None]
  - BLOOD CREATININE INCREASED [None]
  - BLOOD POTASSIUM DECREASED [None]
  - BLOOD SODIUM INCREASED [None]
  - CONFUSIONAL STATE [None]
  - CONTUSION [None]
  - DEHYDRATION [None]
  - PROTEIN TOTAL DECREASED [None]
  - THERAPEUTIC AGENT TOXICITY [None]
  - THROMBOCYTOPENIA [None]
